FAERS Safety Report 9966935 (Version 3)
Quarter: 2014Q1

REPORT INFORMATION
  Report Type: Spontaneous
  Country: JP (occurrence: JP)
  Receive Date: 20140305
  Receipt Date: 20140331
  Transmission Date: 20141002
  Serious: Yes (Other)
  Sender: FDA-Public Use
  Company Number: JP-JNJFOC-20140114546

PATIENT
  Age: 60 Year
  Sex: Male

DRUGS (6)
  1. SOVRIAD [Suspect]
     Indication: CHRONIC HEPATITIS C
     Route: 048
     Dates: start: 20140101
  2. COPEGUS [Suspect]
     Indication: CHRONIC HEPATITIS C
     Route: 048
     Dates: start: 20131226
  3. PEGASYS [Suspect]
     Indication: CHRONIC HEPATITIS C
     Route: 058
     Dates: start: 20131226
  4. AMLODIPINE [Concomitant]
     Indication: HYPERTENSION
     Dosage: PERORAL
     Route: 048
     Dates: start: 20131226
  5. ALLOPURINOL [Concomitant]
     Indication: HYPERURICAEMIA
     Dosage: PERORAL
     Route: 048
     Dates: start: 20131226
  6. ACETAMINOPHEN [Concomitant]
     Indication: PYREXIA
     Route: 048
     Dates: start: 20131227, end: 20140103

REACTIONS (3)
  - Hyperbilirubinaemia [Recovered/Resolved]
  - Alanine aminotransferase increased [Recovered/Resolved]
  - Aspartate aminotransferase increased [Recovered/Resolved]
